FAERS Safety Report 9283706 (Version 4)
Quarter: 2013Q3

REPORT INFORMATION
  Report Type: Spontaneous
  Country: US (occurrence: US)
  Receive Date: 20130510
  Receipt Date: 20130726
  Transmission Date: 20140515
  Serious: Yes (Life-Threatening, Hospitalization, Other)
  Sender: FDA-Public Use
  Company Number: US-GLAXOSMITHKLINE-A1023099A

PATIENT
  Age: 44 Year
  Sex: Female
  Weight: 105.9 kg

DRUGS (1)
  1. FLOLAN [Suspect]
     Indication: PULMONARY ARTERIAL HYPERTENSION
     Dosage: 54.5NGKM CONTINUOUS
     Route: 042
     Dates: start: 20080801

REACTIONS (4)
  - Large intestinal haemorrhage [Recovered/Resolved]
  - Transfusion [Recovered/Resolved]
  - Hospitalisation [Recovered/Resolved]
  - Haemoglobin decreased [Recovered/Resolved]
